FAERS Safety Report 5310119-9 (Version None)
Quarter: 2007Q2

REPORT INFORMATION
  Report Type: 
  Country: None (occurrence: None)
  Receive Date: 20070427
  Receipt Date: 20070423
  Transmission Date: 20071010
  Serious: Yes (Other)
  Sender: FDA-Public Use
  Company Number: US-MERCK-0704USA05521

PATIENT
  Age: 77 Year
  Sex: Female

DRUGS (3)
  1. JANUVIA [Suspect]
     Indication: DIABETES MELLITUS NON-INSULIN-DEPENDENT
     Route: 048
     Dates: start: 20070419, end: 20070421
  2. JANUVIA [Suspect]
     Route: 048
     Dates: start: 20070423
  3. ACTOS [Concomitant]
     Route: 065

REACTIONS (2)
  - BLINDNESS TRANSIENT [None]
  - PALPITATIONS [None]
